FAERS Safety Report 6252628-4 (Version None)
Quarter: 2009Q3

REPORT INFORMATION
  Report Type: 
  Country: None (occurrence: None)
  Receive Date: 20090701
  Receipt Date: 20070718
  Transmission Date: 20100115
  Serious: Yes (Other)
  Sender: FDA-Public Use
  Company Number: US-ASTRAZENECA-2006UW23976

PATIENT
  Age: 18190 Day
  Sex: Female
  Weight: 84.8 kg

DRUGS (13)
  1. SEROQUEL [Suspect]
     Indication: DEPRESSION
     Dosage: 100-600 MG (FLUCTUATING)
     Route: 048
     Dates: start: 20010507
  2. ARIPIPRAZOLE [Concomitant]
  3. RISPERIDONE [Concomitant]
  4. OLANZAPINE [Concomitant]
  5. WELLBUTRIN [Concomitant]
     Dates: start: 20010705
  6. ZYPREXA [Concomitant]
     Indication: HALLUCINATION
     Dosage: 10-15 MG (FLUCTUATING) AT NIGHT
     Dates: start: 20000918
  7. PAXIL [Concomitant]
     Dosage: 20-60 MG
     Dates: start: 20010507
  8. KLONOPIN [Concomitant]
     Dosage: 0.5
     Dates: start: 20000918
  9. METFORMIN [Concomitant]
     Route: 048
     Dates: start: 20071120
  10. NORVASC [Concomitant]
     Dosage: 5-10 MG (FLUCTUATING) ONCE A DAY
     Dates: start: 20000918
  11. ACCUPRIL [Concomitant]
     Dates: start: 20071129
  12. PROTONIX [Concomitant]
     Dates: start: 20071129
  13. LEVOTHYROXINE SODIUM [Concomitant]
     Dosage: 1000  MCG, ONCE A DAY
     Dates: start: 20071129

REACTIONS (2)
  - DIABETES MELLITUS [None]
  - POLYNEUROPATHY [None]
